FAERS Safety Report 6047036-5 (Version None)
Quarter: 2009Q1

REPORT INFORMATION
  Report Type: 
  Country: None (occurrence: None)
  Receive Date: 20090122
  Receipt Date: 20090113
  Transmission Date: 20090719
  Serious: Yes (Hospitalization)
  Sender: FDA-Public Use
  Company Number: NL-ELI_LILLY_AND_COMPANY-NL200812005187

PATIENT
  Sex: Male

DRUGS (6)
  1. SOMATROPIN [Suspect]
     Indication: GROWTH HORMONE DEFICIENCY
     Dosage: 0.2 MG, UNK
     Dates: start: 19960524
  2. THYRAX [Concomitant]
     Indication: SECONDARY HYPOTHYROIDISM
     Dates: start: 19810101
  3. HYDROCORTISON [Concomitant]
     Indication: SECONDARY ADRENOCORTICAL INSUFFICIENCY
     Dates: start: 19810101
  4. HYDROCORTISON [Concomitant]
     Dosage: 100 MG, BOLUS
     Route: 042
  5. HYDROCORTISON [Concomitant]
     Dosage: CONTINOUS INFUSION
     Route: 042
  6. ANDROGEL [Concomitant]
     Indication: SECONDARY HYPOTHYROIDISM
     Dates: start: 19810101

REACTIONS (1)
  - SECONDARY ADRENOCORTICAL INSUFFICIENCY [None]
